FAERS Safety Report 16971094 (Version 4)
Quarter: 2020Q1

REPORT INFORMATION
  Report Type: Spontaneous
  Country: GB (occurrence: GB)
  Receive Date: 20191029
  Receipt Date: 20200302
  Transmission Date: 20200409
  Serious: Yes (Other)
  Sender: FDA-Public Use
  Company Number: GB-MYLANLABS-2019M1101927

PATIENT
  Age: 51 Year
  Sex: Male
  Weight: 78 kg

DRUGS (23)
  1. LANSOPRAZOLE. [Concomitant]
     Active Substance: LANSOPRAZOLE
     Indication: ILL-DEFINED DISORDER
     Dosage: 30 MILLIGRAM, QD
     Dates: start: 20170314
  2. ACETYLSALICYLIC ACID [Concomitant]
     Active Substance: ASPIRIN
     Dosage: TAKE ONE DAILYUNK
     Route: 065
     Dates: start: 20190807
  3. BISOPROLOL [Concomitant]
     Active Substance: BISOPROLOL
     Indication: ILL-DEFINED DISORDER
     Dosage: 2.5 MILLIGRAM
     Dates: start: 20170314, end: 20180428
  4. BISOPROLOL [Concomitant]
     Active Substance: BISOPROLOL
     Dosage: TAKE ONE DAILY
     Route: 065
     Dates: start: 20190807
  5. ROSUVASTATIN. [Concomitant]
     Active Substance: ROSUVASTATIN
     Indication: ILL-DEFINED DISORDER
     Dosage: TAKE ONE TABLET ONCE A DAY
     Route: 065
     Dates: start: 20191205
  6. TRAMADOL. [Concomitant]
     Active Substance: TRAMADOL
     Indication: ILL-DEFINED DISORDER
     Dosage: TAKE ONE TO TWO CAPSULES EVERY 4-6 HOURS (UP TO
     Route: 065
     Dates: start: 20190807
  7. METFORMIN [Concomitant]
     Active Substance: METFORMIN HYDROCHLORIDE
     Indication: ILL-DEFINED DISORDER
     Dosage: TAKE ONE TABLET THREE TIMES DAILY
     Route: 065
     Dates: start: 20190807
  8. SILDENAFIL. [Concomitant]
     Active Substance: SILDENAFIL
     Indication: ILL-DEFINED DISORDER
     Dosage: TAKE ONE TABLET AROUND 1 HOUR BEFORE SEXUAL ACT
     Route: 065
     Dates: start: 20190807
  9. ACETYLSALICYLIC ACID [Concomitant]
     Active Substance: ASPIRIN
     Indication: ILL-DEFINED DISORDER
     Dosage: 75 MILLIGRAM, QD
     Dates: start: 20170314
  10. LAMOTRIGINE. [Concomitant]
     Active Substance: LAMOTRIGINE
     Indication: ILL-DEFINED DISORDER
     Dosage: TAKE TWO TABLETS TWICE DAILY
     Route: 065
     Dates: start: 20190807
  11. RAMIPRIL. [Suspect]
     Active Substance: RAMIPRIL
     Indication: HYPERTENSION
     Dosage: 10 MILLIGRAM, QD,MORNING.
     Dates: start: 20170314, end: 2018
  12. ATORVASTATIN [Suspect]
     Active Substance: ATORVASTATIN
     Indication: PROPHYLAXIS
     Dosage: 40 MILLIGRAM, AM,IN THE MORNING
     Dates: start: 20170310, end: 20180603
  13. LANSOPRAZOLE. [Concomitant]
     Active Substance: LANSOPRAZOLE
     Dosage: TAKE ONE CAPSULE ONCE A DAY TO PROTECT THE STOM
     Route: 065
     Dates: start: 20191123
  14. EPILAM [Concomitant]
     Indication: ILL-DEFINED DISORDER
     Dosage: 3 THREE TIMES DAILY
     Route: 065
     Dates: start: 20190807
  15. TICAGRELOR. [Concomitant]
     Active Substance: TICAGRELOR
     Indication: ILL-DEFINED DISORDER
     Dosage: TAKE ONE TWICE DAILY FOR 1 YEAR
     Route: 065
     Dates: start: 20190807
  16. CETIRIZINE [Concomitant]
     Active Substance: CETIRIZINE HYDROCHLORIDE
     Indication: PERIORBITAL OEDEMA
     Dosage: UNK
     Dates: start: 20170620, end: 2018
  17. AMLODIPINE [Concomitant]
     Active Substance: AMLODIPINE BESYLATE
     Indication: PRODUCT USED FOR UNKNOWN INDICATION
     Dosage: 5 MILLIGRAM, QD
     Dates: start: 20170314
  18. ATORVASTATIN [Suspect]
     Active Substance: ATORVASTATIN
     Dosage: TAKE ONE DAILY
     Route: 065
     Dates: start: 20190807
  19. CANDESARTAN. [Concomitant]
     Active Substance: CANDESARTAN
     Indication: PRODUCT USED FOR UNKNOWN INDICATION
     Dosage: 4 MILLIGRAM, QD
     Dates: start: 20180507
  20. AMITRIPTYLINE HYDROCHLORIDE. [Concomitant]
     Active Substance: AMITRIPTYLINE HYDROCHLORIDE
     Dosage: UNK
  21. FOLIC ACID. [Concomitant]
     Active Substance: FOLIC ACID
     Indication: ILL-DEFINED DISORDER
     Dosage: TAKE ONE TABLET ONCE DAILY FOR 4 MONTHS
     Route: 065
     Dates: start: 20191113
  22. CLOPIDOGREL [Concomitant]
     Active Substance: CLOPIDOGREL BISULFATE
     Indication: PRODUCT USED FOR UNKNOWN INDICATION
     Dosage: 75 MILLIGRAM
     Dates: start: 20170314, end: 201709
  23. AMITRIPTYLINE HYDROCHLORIDE. [Concomitant]
     Active Substance: AMITRIPTYLINE HYDROCHLORIDE
     Indication: ILL-DEFINED DISORDER
     Dosage: TAKE ONE TABLET AT NIGHT
     Route: 065
     Dates: start: 20190807

REACTIONS (17)
  - Periorbital discomfort [Unknown]
  - Burning sensation [Unknown]
  - Muscle fatigue [Unknown]
  - Myalgia [Recovering/Resolving]
  - Pruritus [Unknown]
  - Angioedema [Recovered/Resolved]
  - Musculoskeletal pain [Unknown]
  - Peripheral swelling [Not Recovered/Not Resolved]
  - Tendon pain [Recovering/Resolving]
  - Chromaturia [Unknown]
  - Palmar fasciitis [Unknown]
  - Bursitis [Recovering/Resolving]
  - Malaise [Unknown]
  - Pain in extremity [Not Recovered/Not Resolved]
  - Joint swelling [Unknown]
  - Synovial cyst [Unknown]
  - Sleep disorder [Unknown]

NARRATIVE: CASE EVENT DATE: 20170617
